FAERS Safety Report 20142206 (Version 4)
Quarter: 2023Q2

REPORT INFORMATION
  Report Type: Spontaneous
  Country: RU (occurrence: RU)
  Receive Date: 20211202
  Receipt Date: 20230522
  Transmission Date: 20230721
  Serious: Yes (Other)
  Sender: FDA-Public Use
  Company Number: RU-002147023-NVSC2021RU270647

PATIENT

DRUGS (6)
  1. RUXOLITINIB [Suspect]
     Active Substance: RUXOLITINIB
     Indication: Chronic graft versus host disease
     Dosage: 10 MG, BID
     Route: 065
     Dates: start: 20190726
  2. IBRUTINIB [Suspect]
     Active Substance: IBRUTINIB
     Indication: Product used for unknown indication
     Dosage: 480 MG
     Route: 065
     Dates: start: 20191210
  3. ACYCLOVIR [Concomitant]
     Active Substance: ACYCLOVIR
     Indication: Product used for unknown indication
     Dosage: 600 MG
     Route: 065
  4. METHYLPREDNISOLONE [Concomitant]
     Active Substance: METHYLPREDNISOLONE
     Indication: Product used for unknown indication
     Dosage: 60 MG
     Route: 065
  5. BISEPTOL [Concomitant]
     Active Substance: SULFAMETHOXAZOLE\TRIMETHOPRIM
     Indication: Product used for unknown indication
     Dosage: 960 MG, QD
     Route: 065
  6. OMEPRAZOLE [Concomitant]
     Active Substance: OMEPRAZOLE
     Indication: Product used for unknown indication
     Dosage: 40 MG
     Route: 065

REACTIONS (7)
  - Osteonecrosis [Unknown]
  - Balanoposthitis [Unknown]
  - Sinusitis bacterial [Unknown]
  - Arthralgia [Unknown]
  - Aspergillus infection [Recovered/Resolved]
  - Drug ineffective for unapproved indication [Unknown]
  - Pain [Unknown]

NARRATIVE: CASE EVENT DATE: 20191212
